FAERS Safety Report 4607686-7 (Version None)
Quarter: 2005Q1

REPORT INFORMATION
  Report Type: 
  Country: None (occurrence: None)
  Receive Date: 20050309
  Receipt Date: 20050221
  Transmission Date: 20050727
  Serious: Yes (Other)
  Sender: FDA-Public Use
  Company Number: DE_050215295

PATIENT
  Age: 65 Year
  Sex: Female

DRUGS (5)
  1. ZYPREXA [Suspect]
     Indication: DEPRESSION
     Dosage: 15 MG DAY
     Dates: start: 20040223
  2. ZYPREXA [Suspect]
     Indication: PSYCHOTIC DISORDER
     Dosage: 15 MG DAY
     Dates: start: 20040223
  3. REMERGIL (MIRTAZAPINE ORIFARM) [Concomitant]
  4. RISPERDAL [Concomitant]
  5. LORAZEPAM [Concomitant]

REACTIONS (8)
  - ALANINE AMINOTRANSFERASE INCREASED [None]
  - ASPARTATE AMINOTRANSFERASE INCREASED [None]
  - BLOOD LACTATE DEHYDROGENASE INCREASED [None]
  - DRUG INTERACTION [None]
  - DRUG TOXICITY [None]
  - GAMMA-GLUTAMYLTRANSFERASE INCREASED [None]
  - HEPATIC ENZYME INCREASED [None]
  - LIVER DISORDER [None]
